FAERS Safety Report 24746582 (Version 3)
Quarter: 2025Q1

REPORT INFORMATION
  Report Type: Spontaneous
  Country: CA (occurrence: CA)
  Receive Date: 20241218
  Receipt Date: 20250304
  Transmission Date: 20250409
  Serious: Yes (Other)
  Sender: ASTELLAS
  Company Number: CA-ASTELLAS-2024-AER-024590

PATIENT
  Age: 58 Year
  Sex: Female
  Weight: 56 kg

DRUGS (9)
  1. MYRBETRIQ [Suspect]
     Active Substance: MIRABEGRON
     Indication: Hypertonic bladder
     Route: 048
     Dates: start: 20241120, end: 20241202
  2. VITAMIN C [Concomitant]
     Active Substance: ASCORBIC ACID
     Indication: Product used for unknown indication
     Route: 065
  3. VITAMIN D [Concomitant]
     Active Substance: VITAMIN D NOS
     Indication: Product used for unknown indication
     Route: 065
  4. VITAMIN B [Concomitant]
     Active Substance: VITAMIN B
     Indication: Product used for unknown indication
     Route: 065
  5. Feminex [Concomitant]
     Indication: Menopause
     Route: 065
  6. GLUCOSAMINE [Concomitant]
     Active Substance: GLUCOSAMINE
     Indication: Product used for unknown indication
     Route: 065
  7. Vit E 400 [Concomitant]
     Indication: Product used for unknown indication
     Route: 065
  8. CALCIUM [Concomitant]
     Active Substance: CALCIUM
     Indication: Product used for unknown indication
     Route: 065
  9. ASPIRIN [Concomitant]
     Active Substance: ASPIRIN
     Indication: Product used for unknown indication
     Route: 048

REACTIONS (3)
  - Angina unstable [Recovered/Resolved]
  - Electrocardiogram QT prolonged [Recovered/Resolved]
  - Blood pressure increased [Recovering/Resolving]

NARRATIVE: CASE EVENT DATE: 20241101
